FAERS Safety Report 15009833 (Version 17)
Quarter: 2021Q3

REPORT INFORMATION
  Report Type: Other
  Country: CA (occurrence: CA)
  Receive Date: 20180614
  Receipt Date: 20210817
  Transmission Date: 20211014
  Serious: Yes (Other)
  Sender: FDA-Public Use
  Company Number: CA-APOTEX-2018AP015326

PATIENT
  Age: 23 Year
  Sex: Female

DRUGS (59)
  1. ARIPIPRAZOLE. [Suspect]
     Active Substance: ARIPIPRAZOLE
     Indication: SCHIZOPHRENIA
     Dosage: 1 DOSAGE FORM, QD
     Route: 065
  2. ZIPRASIDONE HYDROCHLORIDE. [Suspect]
     Active Substance: ZIPRASIDONE HYDROCHLORIDE
     Indication: SCHIZOPHRENIA
     Dosage: UNK
     Route: 065
  3. PALIPERIDONE PALMITATE [Suspect]
     Active Substance: PALIPERIDONE PALMITATE
     Indication: SCHIZOPHRENIA
     Route: 030
  4. FLUPENTIXOL [Suspect]
     Active Substance: FLUPENTIXOL
     Indication: SCHIZOPHRENIA
     Dosage: UNK
     Route: 065
  5. LATUDA [Suspect]
     Active Substance: LURASIDONE HYDROCHLORIDE
     Dosage: 1 DOSAGE FORM
     Route: 048
  6. ZIPRASIDONE MESILATE [Suspect]
     Active Substance: ZIPRASIDONE MESYLATE
     Indication: SCHIZOPHRENIA
     Dosage: UNK
     Route: 065
  7. CLOPIXOL (DECANOATE) [Suspect]
     Active Substance: ZUCLOPENTHIXOL DECANOATE
     Indication: SCHIZOPHRENIA
     Dosage: UNK
     Route: 065
  8. INVEGA [Suspect]
     Active Substance: PALIPERIDONE
     Indication: PRODUCT USED FOR UNKNOWN INDICATION
     Dosage: UNK
     Route: 065
  9. INVEGA [Suspect]
     Active Substance: PALIPERIDONE
     Indication: SCHIZOPHRENIA
     Dosage: UNK
     Route: 065
  10. ARIPIPRAZOLE SANDOZ [Suspect]
     Active Substance: ARIPIPRAZOLE
     Indication: SCHIZOPHRENIA
     Dosage: 1 DOSAGE FORM
     Route: 065
  11. PALIPERIDONE PALMITATE [Concomitant]
     Active Substance: PALIPERIDONE PALMITATE
     Indication: SCHIZOPHRENIA
     Dosage: UNK
     Route: 065
  12. ZIPRASIDONE HYDROCHLORIDE. [Concomitant]
     Active Substance: ZIPRASIDONE HYDROCHLORIDE
     Indication: SCHIZOPHRENIA
     Dosage: UNK
     Route: 065
  13. OLANZAPINE. [Suspect]
     Active Substance: OLANZAPINE
     Indication: SCHIZOPHRENIA
     Dosage: 1 DOSAGE FORM
     Route: 065
  14. ARIPIPRAZOLE. [Suspect]
     Active Substance: ARIPIPRAZOLE
     Dosage: 1 UNK
     Route: 065
  15. LURASIDONE [Suspect]
     Active Substance: LURASIDONE
     Dosage: 1 DOSAGE FORM
     Route: 065
  16. ABILIFY [Suspect]
     Active Substance: ARIPIPRAZOLE
     Indication: SCHIZOPHRENIA
     Dosage: 1 DOSAGE FORM, QD
     Route: 065
  17. LATUDA [Concomitant]
     Active Substance: LURASIDONE HYDROCHLORIDE
     Indication: SCHIZOPHRENIA
     Dosage: UNK
     Route: 065
  18. FLUPENTIXOL DECANOATE [Concomitant]
     Active Substance: FLUPENTIXOL DECANOATE
     Indication: SCHIZOPHRENIA
     Dosage: UNK
     Route: 065
  19. SAPHRIS [Suspect]
     Active Substance: ASENAPINE MALEATE
     Indication: SCHIZOPHRENIA
     Dosage: 1 DOSAGE FORM
     Route: 066
  20. LATUDA [Suspect]
     Active Substance: LURASIDONE HYDROCHLORIDE
     Indication: SCHIZOPHRENIA
     Dosage: 1 DOSAGE FORM, QD
     Route: 048
  21. RISPERDAL [Suspect]
     Active Substance: RISPERIDONE
     Dosage: 1 DOSAGE FORM, QD
     Route: 065
  22. FLUPENTIXOL DIHYDROCHLORIDE [Suspect]
     Active Substance: FLUPENTIXOL DIHYDROCHLORIDE
     Indication: SCHIZOPHRENIA
     Dosage: UNK
     Route: 065
  23. ARIPIPRAZOLE. [Concomitant]
     Active Substance: ARIPIPRAZOLE
     Indication: PRODUCT USED FOR UNKNOWN INDICATION
     Dosage: UNK
     Route: 065
  24. INVEGA [Concomitant]
     Active Substance: PALIPERIDONE
     Indication: SCHIZOPHRENIA
     Route: 065
  25. QUETIAPINE. [Suspect]
     Active Substance: QUETIAPINE
     Indication: SCHIZOPHRENIA
     Dosage: 200 MILLIGRAM
     Route: 048
  26. CLOZAPINE. [Suspect]
     Active Substance: CLOZAPINE
     Indication: SCHIZOPHRENIA
     Dosage: UNK
     Route: 065
  27. ABILIFY MAINTENA [Suspect]
     Active Substance: ARIPIPRAZOLE
     Indication: SCHIZOPHRENIA
     Dosage: 1 DOSAGE FORM
     Route: 065
  28. PALIPERIDONE. [Suspect]
     Active Substance: PALIPERIDONE
     Indication: SCHIZOPHRENIA
     Dosage: 1 DOSAGE FORM, QD
     Route: 065
  29. INVEGA SUSTENNA [Suspect]
     Active Substance: PALIPERIDONE PALMITATE
     Indication: SCHIZOPHRENIA
     Dosage: UNK
     Route: 065
  30. INVEGA SUSTENNA [Suspect]
     Active Substance: PALIPERIDONE PALMITATE
     Indication: PRODUCT USED FOR UNKNOWN INDICATION
  31. ZELDOX [Suspect]
     Active Substance: ZIPRASIDONE
     Indication: SCHIZOPHRENIA
     Dosage: UNK
     Route: 065
  32. LATUDA [Suspect]
     Active Substance: LURASIDONE HYDROCHLORIDE
     Indication: PRODUCT USED FOR UNKNOWN INDICATION
     Dosage: 1 DOSAGE FORM, QD
     Route: 065
  33. PALIPERIDONE PALMITATE [Suspect]
     Active Substance: PALIPERIDONE PALMITATE
     Indication: SCHIZOPHRENIA
     Dosage: UNK
     Route: 065
  34. ABILIFY MAINTENA [Suspect]
     Active Substance: ARIPIPRAZOLE
     Indication: SCHIZOPHRENIA
     Dosage: UNK
     Route: 065
  35. ZUCLOPENTHIXOL HYDROCHLORIDE [Suspect]
     Active Substance: ZUCLOPENTHIXOL HYDROCHLORIDE
     Indication: SCHIZOPHRENIA
     Dosage: UNK
     Route: 065
  36. RISPERIDONE. [Suspect]
     Active Substance: RISPERIDONE
     Indication: SCHIZOPHRENIA
     Dosage: 1 DOSAGE FORM, QD
     Route: 065
  37. CLOPIXOL [ZUCLOPENTHIXOL ACETATE] [Suspect]
     Active Substance: ZUCLOPENTHIXOL ACETATE
     Indication: SCHIZOPHRENIA
     Dosage: UNK
     Route: 030
  38. CLOZARIL [Suspect]
     Active Substance: CLOZAPINE
     Indication: SCHIZOPHRENIA
     Dosage: UNK
     Route: 065
  39. FLUANXOL [FLUPENTIXOL DIHYDROCHLORIDE] [Suspect]
     Active Substance: FLUPENTIXOL DIHYDROCHLORIDE
     Indication: SCHIZOPHRENIA
     Dosage: UNK
     Route: 065
  40. SEROQUEL [Suspect]
     Active Substance: QUETIAPINE FUMARATE
     Indication: SCHIZOPHRENIA
     Dosage: UNK
     Route: 065
  41. PALIPERIDONE PALMITATE [Suspect]
     Active Substance: PALIPERIDONE PALMITATE
     Indication: PRODUCT USED FOR UNKNOWN INDICATION
  42. RISPERDAL [Suspect]
     Active Substance: RISPERIDONE
     Indication: SCHIZOPHRENIA
     Dosage: UNK
     Route: 065
  43. ZUCLOPENTHIXOL DECANOATE [Suspect]
     Active Substance: ZUCLOPENTHIXOL DECANOATE
     Indication: SCHIZOPHRENIA
     Route: 065
  44. ZUCLOPENTHIXOL ACETATE [Suspect]
     Active Substance: ZUCLOPENTHIXOL ACETATE
     Indication: SCHIZOPHRENIA
     Dosage: UNK
     Route: 065
  45. INVEGA [Suspect]
     Active Substance: PALIPERIDONE
     Indication: SCHIZOPHRENIA
     Dosage: UNK
     Route: 065
  46. RISPERDAL CONSTA [Suspect]
     Active Substance: RISPERIDONE
     Indication: SCHIZOPHRENIA
     Dosage: 1 DOSAGE FORM
     Route: 065
  47. RISPERDAL [Concomitant]
     Active Substance: RISPERIDONE
     Indication: SCHIZOPHRENIA
     Dosage: 1 DOSAGE FORM
     Route: 065
  48. RISPERDAL [Concomitant]
     Active Substance: RISPERIDONE
     Indication: PRODUCT USED FOR UNKNOWN INDICATION
  49. ZUCLOPENTHIXOL ACETATE [Concomitant]
     Active Substance: ZUCLOPENTHIXOL ACETATE
     Indication: SCHIZOPHRENIA
     Dosage: UNK
     Route: 065
  50. LURASIDONE [Suspect]
     Active Substance: LURASIDONE
     Indication: SCHIZOPHRENIA
     Dosage: 1 DOSAGE FORM, QD
     Route: 065
  51. ZUCLOPENTHIXOL HYDROCHLORIDE [Suspect]
     Active Substance: ZUCLOPENTHIXOL HYDROCHLORIDE
     Indication: SCHIZOPHRENIA
     Dosage: UNK
     Route: 030
  52. ZYPREXA [Suspect]
     Active Substance: OLANZAPINE
     Indication: SCHIZOPHRENIA
     Dosage: UNK
     Route: 065
  53. PALIPERIDONE. [Suspect]
     Active Substance: PALIPERIDONE
     Indication: PRODUCT USED FOR UNKNOWN INDICATION
     Dosage: UNK
     Route: 030
  54. SAPHRIS [Suspect]
     Active Substance: ASENAPINE MALEATE
     Dosage: UNK
     Route: 048
  55. ZUCLOPENTHIXOL HYDROCHLORIDE [Suspect]
     Active Substance: ZUCLOPENTHIXOL HYDROCHLORIDE
     Dosage: UNK
     Route: 065
  56. INVEGA [Suspect]
     Active Substance: PALIPERIDONE
     Indication: SCHIZOPHRENIA
     Dosage: 1 DOSAGE FORM, QD
     Route: 048
  57. APO?QUETIAPINE [Suspect]
     Active Substance: QUETIAPINE
     Indication: SCHIZOPHRENIA
     Dosage: UNK
     Route: 065
  58. FLUPENTIXOL DECANOATE [Suspect]
     Active Substance: FLUPENTIXOL DECANOATE
     Indication: SCHIZOPHRENIA
     Dosage: UNK
     Route: 065
  59. INVEGA [Concomitant]
     Active Substance: PALIPERIDONE
     Indication: PRODUCT USED FOR UNKNOWN INDICATION
     Dosage: UNK
     Route: 065

REACTIONS (18)
  - Dystonia [Unknown]
  - Blood glucose increased [Unknown]
  - Personality change due to a general medical condition [Unknown]
  - Insurance issue [Unknown]
  - Blood prolactin abnormal [Unknown]
  - Sedation [Unknown]
  - Adverse drug reaction [Unknown]
  - Disturbance in social behaviour [Unknown]
  - Metabolic disorder [Unknown]
  - Dyskinesia [Unknown]
  - Personality change [Unknown]
  - Schizophrenia [Unknown]
  - Sexual dysfunction [Unknown]
  - Completed suicide [Unknown]
  - Suicide attempt [Unknown]
  - Anosognosia [Unknown]
  - Condition aggravated [Unknown]
  - Drug ineffective [Unknown]
